FAERS Safety Report 6108411-3 (Version None)
Quarter: 2009Q1

REPORT INFORMATION
  Report Type: 
  Country: None (occurrence: None)
  Receive Date: 20090309
  Receipt Date: 20090304
  Transmission Date: 20090719
  Serious: Yes (Life-Threatening, Hospitalization, Other)
  Sender: FDA-Public Use
  Company Number: PHHY2009FR08168

PATIENT
  Sex: Female
  Weight: 84 kg

DRUGS (1)
  1. VOLTARENE [Suspect]
     Indication: PAIN
     Dosage: 1 DF, QD
     Route: 048
     Dates: start: 20090129

REACTIONS (16)
  - ACIDOSIS [None]
  - ANAPHYLACTIC SHOCK [None]
  - ASTHENIA [None]
  - CYANOSIS [None]
  - DRUG ADMINISTRATION ERROR [None]
  - HAEMODYNAMIC INSTABILITY [None]
  - LIVER DISORDER [None]
  - LOSS OF CONSCIOUSNESS [None]
  - MALAISE [None]
  - PULMONARY OEDEMA [None]
  - RENAL DISORDER [None]
  - RESPIRATORY ARREST [None]
  - SHOCK [None]
  - TACHYCARDIA [None]
  - URTICARIA [None]
  - VENTRICULAR EXTRASYSTOLES [None]
